FAERS Safety Report 11315870 (Version 1)
Quarter: 2015Q3

REPORT INFORMATION
  Report Type: Spontaneous
  Country: GB (occurrence: GB)
  Receive Date: 20150728
  Receipt Date: 20150728
  Transmission Date: 20151125
  Serious: Yes (Hospitalization)
  Sender: FDA-Public Use
  Company Number: GB-TEVA-580316ACC

PATIENT
  Age: 63 Year
  Sex: Male
  Weight: 65.8 kg

DRUGS (8)
  1. AVASTIN [Suspect]
     Active Substance: BEVACIZUMAB
     Indication: DIFFUSE LARGE B-CELL LYMPHOMA
     Dosage: 10 MG/KG EVERY 14 DAYS, DATE OF LAST DOSE PRIOR TO SAE: 31-DEC-2009.
     Route: 042
  2. COTRIMOXAZOLE [Concomitant]
     Active Substance: SULFAMETHOXAZOLE\TRIMETHOPRIM
     Route: 065
     Dates: start: 20091231, end: 20100212
  3. FLUCONAZOLE. [Concomitant]
     Active Substance: FLUCONAZOLE
     Route: 065
     Dates: start: 20091231, end: 20100212
  4. VINCRISTINE [Suspect]
     Active Substance: VINCRISTINE
     Indication: DIFFUSE LARGE B-CELL LYMPHOMA
     Dosage: 2 MG, EVERY 14 DAYS. DATE OF LAST DOSE PRIOR TO SAE 31-DEC-2009
     Route: 042
  5. CYCLOPHOSPHAMIDE. [Suspect]
     Active Substance: CYCLOPHOSPHAMIDE
     Indication: DIFFUSE LARGE B-CELL LYMPHOMA
     Dosage: 1380 MG EVERY 14 DAYS, DATE OF LAST DOSE PRIOR TO SAE 31-DEC-2009.
     Route: 042
  6. ACICLOVIR [Concomitant]
     Active Substance: ACYCLOVIR
     Route: 065
     Dates: start: 20091231, end: 20100212
  7. PREDNISOLONE. [Suspect]
     Active Substance: PREDNISOLONE
     Indication: DIFFUSE LARGE B-CELL LYMPHOMA
     Dosage: 100 MILLIGRAM DAILY; DATE OF LAST DOSE PRIOR TO SAE 31-DEC-2009
     Route: 048
  8. MABTHERA [Suspect]
     Active Substance: RITUXIMAB
     Indication: DIFFUSE LARGE B-CELL LYMPHOMA
     Dosage: FORM: INFUSION; LAST DOSE ON 31 DEC 2009. 375 MG/M2 EVERY 14 DAYS
     Route: 042
     Dates: start: 20091029

REACTIONS (1)
  - Diarrhoea [Recovered/Resolved]

NARRATIVE: CASE EVENT DATE: 20100111
